FAERS Safety Report 14845725 (Version 1)
Quarter: 2018Q2

REPORT INFORMATION
  Report Type: Spontaneous
  Country: US (occurrence: US)
  Receive Date: 20180419
  Receipt Date: 20180419
  Transmission Date: 20180711
  Serious: Yes (Death)
  Sender: FDA-Public Use
  Company Number: None

PATIENT
  Age: 32 Year
  Sex: Female
  Weight: 95 kg

DRUGS (18)
  1. DOMPERIDONE [Suspect]
     Active Substance: DOMPERIDONE
     Indication: IMPAIRED GASTRIC EMPTYING
     Route: 048
     Dates: start: 20180411, end: 20180414
  2. ONDANSTRON. 4 MG. [Concomitant]
     Dates: start: 20180307, end: 20180414
  3. AZITHROMICIN. 250 MG. [Concomitant]
     Dates: start: 20180326, end: 20180414
  4. FAMOTIDINE. 20 MG. [Concomitant]
     Dates: start: 20180411, end: 20180414
  5. HYDROMORPHONE. 2 MG. [Concomitant]
     Dates: start: 20180326, end: 20180414
  6. MARINOL 5 MG. [Concomitant]
     Dates: start: 20180411, end: 20180414
  7. LIDOCAINE 5% PATCHES. [Concomitant]
     Dates: start: 20170921, end: 20180414
  8. PROCHLORPERAZINE. 5 MG. [Concomitant]
     Dates: start: 20180411, end: 20180414
  9. QUETIAPINE. 50 MG. [Concomitant]
     Dates: start: 20180328, end: 20180414
  10. VENLAFAXINE. [Concomitant]
     Dates: start: 20170720, end: 20180414
  11. MAGNESIUM OXIDE. 400 MG. [Concomitant]
     Dates: start: 20180326, end: 20180414
  12. GABAPENTIN. 300 MG TID. [Concomitant]
     Dates: start: 20171116, end: 20180414
  13. HYDROHYZINE. 25 MG QID. [Concomitant]
     Dates: start: 20180326, end: 20180414
  14. TOPIRAMATE. 100 MG TWICE A DAY. [Concomitant]
     Dates: start: 20170720, end: 20180414
  15. ACETAMINOPHEN. 325 MG. [Concomitant]
     Dates: start: 20180411, end: 20180414
  16. ALPRAZOLAM. 0.5 MG. [Concomitant]
     Dates: start: 20180328, end: 20180414
  17. NUVARING. 0.12 MG. [Concomitant]
     Dates: start: 20171118, end: 20180414
  18. FERROUS SULFATE. 65 MG, 325 MG DAILY. [Concomitant]
     Dates: start: 20180411, end: 20180414

REACTIONS (1)
  - Unresponsive to stimuli [None]

NARRATIVE: CASE EVENT DATE: 20180414
